FAERS Safety Report 19426717 (Version 2)
Quarter: 2021Q2

REPORT INFORMATION
  Report Type: Spontaneous
  Country: US (occurrence: US)
  Receive Date: 20210617
  Receipt Date: 20210629
  Transmission Date: 20210717
  Serious: No
  Sender: FDA-Public Use
  Company Number: US-SA-2021SA197821

PATIENT
  Age: 78 Year
  Sex: Female

DRUGS (1)
  1. AMBIEN [Suspect]
     Active Substance: ZOLPIDEM TARTRATE
     Indication: INSOMNIA
     Dosage: 10 MG, QD (10MG DRUG INTERVAL DOSAGE : QHS DRUG TREATMENT DURATION: SINCE 1997 UTR STOP DATE)
     Route: 065

REACTIONS (3)
  - Therapeutic product effect decreased [Unknown]
  - Sleep disorder [Unknown]
  - Fatigue [Unknown]
